FAERS Safety Report 5346442-1 (Version None)
Quarter: 2007Q2

REPORT INFORMATION
  Report Type: 
  Country: None (occurrence: None)
  Receive Date: 20070426
  Receipt Date: 20060619
  Transmission Date: 20071010
  Serious: Yes (Other)
  Sender: FDA-Public Use
  Company Number: US-JNJFOC-20060606237

PATIENT
  Age: 34 Year
  Sex: Female

DRUGS (1)
  1. ULTRAM [Suspect]
     Indication: INTERVERTEBRAL DISC DEGENERATION
     Dosage: ORAL
     Route: 048
     Dates: start: 19950101, end: 19950101

REACTIONS (1)
  - CONVULSION [None]
